FAERS Safety Report 17247579 (Version 1)
Quarter: 2019Q4

REPORT INFORMATION
  Report Type: Spontaneous
  Country: US (occurrence: US)
  Receive Date: 20191213
  Receipt Date: 20191213
  Transmission Date: 20200122
  Serious: No
  Sender: FDA-Public Use
  Company Number: None

PATIENT
  Age: 64 Year
  Sex: Female

DRUGS (1)
  1. IV SCIG 24G 9MM HIGH FLO RMS2-2409 [Suspect]
     Active Substance: HUMAN IMMUNOGLOBULIN G
     Indication: IMMUNODEFICIENCY COMMON VARIABLE
     Dosage: ?          OTHER STRENGTH: 24G 9MM /  RMS2-2;OTHER DOSE:2 NEEDLE SITES;OTHER FREQUENCY:EVERY 4 WEEKS;?
     Route: 058
     Dates: start: 20191009

REACTIONS (4)
  - Injection site pain [None]
  - Injection site haemorrhage [None]
  - Infusion related reaction [None]
  - Needle issue [None]

NARRATIVE: CASE EVENT DATE: 20191115
